FAERS Safety Report 16327229 (Version 2)
Quarter: 2019Q2

REPORT INFORMATION
  Report Type: Report from Study
  Country: JP (occurrence: JP)
  Receive Date: 20190517
  Receipt Date: 20190620
  Transmission Date: 20190711
  Serious: Yes (Hospitalization)
  Sender: FDA-Public Use
  Company Number: JP-REGENERON PHARMACEUTICALS, INC.-2019-31692

PATIENT

DRUGS (8)
  1. PAVULON [Concomitant]
     Active Substance: PANCURONIUM BROMIDE
     Indication: NASOPHARYNGITIS
     Dosage: NA, PRN
     Route: 048
     Dates: start: 20190430, end: 20190504
  2. SANTE DE U PLUS E ALFA [Concomitant]
     Indication: VITREOUS FLOATERS
     Dosage: 1 GTT, PRN
     Route: 047
  3. BISOPROLOL FUMARATE. [Concomitant]
     Active Substance: BISOPROLOL FUMARATE
     Indication: HYPERTENSION
     Dosage: 5 MG, QD
     Route: 048
     Dates: start: 2013
  4. ATORVASTATIN CALCIUM TRIHYDRATE [Concomitant]
     Active Substance: ATORVASTATIN CALCIUM
     Indication: HYPERLIPIDAEMIA
     Dosage: 10 MG, QD
     Route: 048
     Dates: start: 20190427
  5. LEVOFLOXACINE                      /01278901/ [Concomitant]
     Active Substance: LEVOFLOXACIN
     Indication: EYE INFLAMMATION
     Dosage: 1 GTT, PRN
     Route: 047
     Dates: start: 20190507
  6. CEMIPLIMAB [Suspect]
     Active Substance: CEMIPLIMAB
     Indication: NON-SMALL CELL LUNG CANCER
     Dosage: 350 MG, Q3W
     Route: 042
     Dates: start: 20190425
  7. SIMVASTATIN. [Concomitant]
     Active Substance: SIMVASTATIN
     Indication: HYPERLIPIDAEMIA
     Dosage: 5 MG, QD
     Route: 048
     Dates: start: 2013, end: 20190426
  8. DIFLUPREDNATE [Concomitant]
     Active Substance: DIFLUPREDNATE
     Indication: DERMATITIS ACNEIFORM
     Dosage: NA, PRN
     Route: 062
     Dates: start: 20190502, end: 20190507

REACTIONS (1)
  - Facial paralysis [Recovered/Resolved with Sequelae]

NARRATIVE: CASE EVENT DATE: 20190510
